FAERS Safety Report 4821698-X (Version None)
Quarter: 2005Q4

REPORT INFORMATION
  Report Type: 
  Country: None (occurrence: None)
  Receive Date: 20051107
  Receipt Date: 20050629
  Transmission Date: 20060501
  Serious: Yes (Hospitalization)
  Sender: FDA-Public Use
  Company Number: US-MERCK-0506USA04325

PATIENT
  Age: 57 Year
  Sex: Male
  Weight: 159 kg

DRUGS (19)
  1. VIOXX [Suspect]
     Indication: OSTEOARTHRITIS
     Route: 048
     Dates: start: 20020101, end: 20040901
  2. WARFARIN SODIUM [Concomitant]
     Route: 065
     Dates: start: 19970101
  3. PLAVIX [Concomitant]
     Route: 065
     Dates: start: 20000101
  4. ACTOS [Concomitant]
     Route: 065
  5. TOPROL-XL [Concomitant]
     Indication: HYPERTENSION
     Route: 065
     Dates: start: 20000101
  6. TOPROL-XL [Concomitant]
     Indication: CARDIAC DISORDER
     Route: 065
     Dates: start: 20000101
  7. MEVACOR [Concomitant]
     Indication: BLOOD CHOLESTEROL INCREASED
     Route: 065
     Dates: start: 19880301
  8. ACIPHEX [Concomitant]
     Route: 065
  9. DIOVAN [Concomitant]
     Indication: HYPERTENSION
     Route: 065
     Dates: start: 20000101
  10. GLUCOPHAGE [Concomitant]
     Route: 065
  11. XANAX [Concomitant]
     Indication: DEPRESSION
     Route: 065
     Dates: start: 20040101
  12. XANAX [Concomitant]
     Indication: ANXIETY DISORDER
     Route: 065
     Dates: start: 20040101
  13. BENZONATATE [Concomitant]
     Route: 065
  14. DIFLORASONE DIACETATE [Concomitant]
     Route: 065
  15. PAXIL [Concomitant]
     Indication: DEPRESSION
     Route: 065
     Dates: start: 20020101, end: 20040101
  16. PAXIL [Concomitant]
     Indication: CHRONIC FATIGUE SYNDROME
     Route: 065
     Dates: start: 20020101, end: 20040101
  17. NITROQUICK [Concomitant]
     Route: 065
     Dates: start: 19970601
  18. LEXAPRO [Concomitant]
     Indication: DEPRESSION
     Route: 065
     Dates: start: 20040401
  19. ZETIA [Concomitant]
     Indication: BLOOD CHOLESTEROL INCREASED
     Route: 065
     Dates: start: 20040601

REACTIONS (5)
  - CORONARY ARTERY DISEASE [None]
  - DYSLIPIDAEMIA [None]
  - EMOTIONAL DISORDER [None]
  - MULTI-ORGAN DISORDER [None]
  - MYOCARDIAL INFARCTION [None]
